FAERS Safety Report 9731460 (Version 1)
Quarter: 2013Q4

REPORT INFORMATION
  Report Type: Spontaneous
  Country: US (occurrence: None)
  Receive Date: 20131204
  Receipt Date: 20131204
  Transmission Date: 20140711
  Serious: Yes (Other)
  Sender: FDA-Public Use
  Company Number: None

PATIENT
  Age: 46 Year
  Sex: Female
  Weight: 97.52 kg

DRUGS (1)
  1. ATORVASTATIN CALC [Suspect]
     Indication: BLOOD CHOLESTEROL INCREASED
     Dosage: 1/2 FOR 2 WEEKS THEN 1 FOR 4 DAYS INCREASED FLUID?
     Route: 048
     Dates: start: 20131007, end: 20131025

REACTIONS (2)
  - Swelling [None]
  - Dyspnoea [None]
